FAERS Safety Report 8583658 (Version 2)
Quarter: 2013Q2

REPORT INFORMATION
  Report Type: Spontaneous
  Country: IT (occurrence: IT)
  Receive Date: 20120529
  Receipt Date: 20130426
  Transmission Date: 20140414
  Serious: Yes (Hospitalization)
  Sender: FDA-Public Use
  Company Number: IT-ROCHE-1072941

PATIENT
  Age: 45 Year
  Sex: Male

DRUGS (2)
  1. PEGASYS [Suspect]
     Indication: HIV INFECTION
     Route: 058
     Dates: start: 20111109, end: 20120528
  2. ATRIPLA [Concomitant]
     Route: 065

REACTIONS (2)
  - Anxiety [Not Recovered/Not Resolved]
  - Binge drinking [Not Recovered/Not Resolved]
